FAERS Safety Report 12954959 (Version 1)
Quarter: 2016Q4

REPORT INFORMATION
  Report Type: Spontaneous
  Country: US (occurrence: US)
  Receive Date: 20161118
  Receipt Date: 20161118
  Transmission Date: 20170207
  Serious: Yes (Other)
  Sender: FDA-Public Use
  Company Number: US-SA-2016SA207389

PATIENT
  Age: 72 Year
  Sex: Male

DRUGS (4)
  1. LANTUS [Suspect]
     Active Substance: INSULIN GLARGINE
     Indication: TYPE 2 DIABETES MELLITUS
     Route: 065
     Dates: end: 201611
  2. LANTUS [Suspect]
     Active Substance: INSULIN GLARGINE
     Indication: TYPE 2 DIABETES MELLITUS
     Route: 065
     Dates: end: 201609
  3. TOUJEO [Concomitant]
     Active Substance: INSULIN GLARGINE
     Dosage: 65 UNITS AM AND 75 UNITS PM
  4. SOLOSTAR [Concomitant]
     Active Substance: DEVICE

REACTIONS (5)
  - Cerebral haemorrhage [Unknown]
  - Drug dose omission [Unknown]
  - Arthropathy [Unknown]
  - Cardiac disorder [Unknown]
  - Blood glucose increased [Unknown]

NARRATIVE: CASE EVENT DATE: 2006
